FAERS Safety Report 5895564-5 (Version None)
Quarter: 2008Q3

REPORT INFORMATION
  Report Type: 
  Country: None (occurrence: None)
  Receive Date: 20080924
  Receipt Date: 20080507
  Transmission Date: 20090109
  Serious: Yes (Other)
  Sender: FDA-Public Use
  Company Number: US-ASTRAZENECA-2006UW07965

PATIENT
  Sex: Male
  Weight: 61.2 kg

DRUGS (9)
  1. SEROQUEL [Suspect]
     Indication: SCHIZOPHRENIA
     Route: 048
     Dates: start: 19990101, end: 20020101
  2. SEROQUEL [Suspect]
     Indication: BIPOLAR DISORDER
     Route: 048
     Dates: start: 19990101, end: 20020101
  3. SEROQUEL [Suspect]
     Indication: DEPRESSION
     Route: 048
     Dates: start: 19990101, end: 20020101
  4. ABILIFY [Concomitant]
  5. CLOZARIL [Concomitant]
  6. HALDOL [Concomitant]
     Dates: start: 19900101
  7. RISPERDAL [Concomitant]
  8. THORAZINE [Concomitant]
     Dates: start: 19900101
  9. ZYPREXA [Concomitant]
     Dates: start: 19900101

REACTIONS (1)
  - TARDIVE DYSKINESIA [None]
